FAERS Safety Report 6517092-6 (Version None)
Quarter: 2009Q4

REPORT INFORMATION
  Report Type: 
  Country: None (occurrence: None)
  Receive Date: 20091223
  Receipt Date: 20091216
  Transmission Date: 20100525
  Serious: Yes (Hospitalization, Other)
  Sender: FDA-Public Use
  Company Number: B0595199A

PATIENT
  Sex: Male
  Weight: 85 kg

DRUGS (6)
  1. ARIXTRA [Suspect]
     Indication: THROMBOSIS PROPHYLAXIS
     Dosage: 2.5MG PER DAY
     Route: 058
     Dates: start: 20090913, end: 20090915
  2. KARDEGIC [Suspect]
     Indication: DRUG USE FOR UNKNOWN INDICATION
     Dosage: 160MG PER DAY
     Route: 048
     Dates: start: 19890101, end: 20090915
  3. ZYLORIC [Concomitant]
     Dosage: 100MG PER DAY
     Route: 048
  4. AVODART [Concomitant]
     Indication: PROSTATIC DISORDER
     Dosage: .5MG PER DAY
     Route: 048
  5. CRESTOR [Concomitant]
     Dosage: 5MG PER DAY
     Route: 048
  6. PRAXILENE [Concomitant]
     Indication: DRUG USE FOR UNKNOWN INDICATION
     Dosage: 200MG PER DAY
     Route: 048

REACTIONS (4)
  - CONDITION AGGRAVATED [None]
  - HAEMATOMA [None]
  - OEDEMA PERIPHERAL [None]
  - TRAUMATIC HAEMATOMA [None]
